FAERS Safety Report 16522343 (Version 1)
Quarter: 2019Q3

REPORT INFORMATION
  Report Type: Report from Study
  Country: ES (occurrence: ES)
  Receive Date: 20190702
  Receipt Date: 20190702
  Transmission Date: 20191004
  Serious: Yes (Other)
  Sender: FDA-Public Use
  Company Number: ES-MYLANLABS-2019M1061004

PATIENT
  Age: 8 Year
  Sex: Female
  Weight: 27.4 kg

DRUGS (14)
  1. ETOPOSIDE. [Suspect]
     Active Substance: ETOPOSIDE
     Dosage: 500 MILLIGRAM/SQ. METER, TOTAL
     Route: 065
     Dates: start: 201409
  2. ETOPOSIDE. [Suspect]
     Active Substance: ETOPOSIDE
     Indication: PRODUCT USED FOR UNKNOWN INDICATION
     Dosage: 300 MILLIGRAM/SQ. METER, TOTAL
     Route: 065
     Dates: start: 201304
  3. CYCLOPHOSPHAMIDE. [Suspect]
     Active Substance: CYCLOPHOSPHAMIDE
     Dosage: 120 MILLIGRAM/KILOGRAM, TOTAL
     Route: 065
     Dates: start: 201410
  4. ETOPOSIDE. [Suspect]
     Active Substance: ETOPOSIDE
     Dosage: 300 MILLIGRAM/SQ. METER, TOTAL
     Route: 065
     Dates: start: 201305
  5. DAUNORUBICIN [Suspect]
     Active Substance: DAUNORUBICIN
     Dosage: 30 MILLIGRAM/SQ. METER, TOTAL
     Route: 065
     Dates: start: 201408
  6. CYCLOPHOSPHAMIDE. [Suspect]
     Active Substance: CYCLOPHOSPHAMIDE
     Indication: ACUTE LYMPHOCYTIC LEUKAEMIA
     Dosage: 500 MILLIGRAM/SQ. METER, TOTAL
     Route: 065
     Dates: start: 201303
  7. CYCLOPHOSPHAMIDE. [Suspect]
     Active Substance: CYCLOPHOSPHAMIDE
     Indication: CHEMOTHERAPY
     Dosage: 1000 MILLIGRAM/SQ. METER, TOTAL
     Route: 065
     Dates: start: 201407
  8. SEPTRIN [Concomitant]
     Active Substance: SULFAMETHOXAZOLE\TRIMETHOPRIM
     Indication: ANTIFUNGAL PROPHYLAXIS
     Dosage: 800 MILLIGRAM, QD (400 MG, BID)
     Route: 048
     Dates: start: 20160229
  9. ETOPOSIDE. [Suspect]
     Active Substance: ETOPOSIDE
     Dosage: 30 MILLIGRAM/KILOGRAM, TOTAL (TOTAL DOSE 30 MG/KG, CONDITIONING HSCT)
     Route: 065
     Dates: start: 201410
  10. ATG                                /00575401/ [Concomitant]
     Active Substance: LAPINE T-LYMPHOCYTE IMMUNE GLOBULIN
     Indication: PRODUCT USED FOR UNKNOWN INDICATION
     Dosage: UNK
     Route: 065
  11. DAUNORUBICIN [Suspect]
     Active Substance: DAUNORUBICIN
     Indication: ACUTE LYMPHOCYTIC LEUKAEMIA
     Dosage: 60 MILLIGRAM/SQ. METER, TOTAL
     Route: 065
     Dates: start: 201303
  12. DAUNORUBICIN [Suspect]
     Active Substance: DAUNORUBICIN
     Indication: CHEMOTHERAPY
     Dosage: 90 MILLIGRAM/SQ. METER, TOTAL
     Route: 065
     Dates: start: 201407
  13. TISAGENLECLEUCEL-T [Suspect]
     Active Substance: TISAGENLECLEUCEL
     Indication: ACUTE LYMPHOCYTIC LEUKAEMIA
     Dosage: 20 MILLILITER, TOTAL (20 ML, ONCE/SINGLE (0.7 X10^8))
     Route: 042
     Dates: start: 20160620, end: 20160620
  14. AMOXICILLIN. [Concomitant]
     Active Substance: AMOXICILLIN
     Indication: PROPHYLAXIS
     Dosage: 500 MILLIGRAM, QD
     Route: 048
     Dates: start: 20160802

REACTIONS (2)
  - Second primary malignancy [Not Recovered/Not Resolved]
  - Myelodysplastic syndrome [Not Recovered/Not Resolved]

NARRATIVE: CASE EVENT DATE: 20170308
